FAERS Safety Report 10431315 (Version 1)
Quarter: 2014Q3

REPORT INFORMATION
  Report Type: Spontaneous
  Country: US (occurrence: None)
  Receive Date: 20140815
  Receipt Date: 20140815
  Transmission Date: 20150326
  Serious: Yes (Other)
  Sender: FDA-Public Use
  Company Number: US-2014-10768

PATIENT
  Age: 37 Year
  Sex: Female

DRUGS (18)
  1. ABILIFY MAINTENA [Suspect]
     Active Substance: ARIPIPRAZOLE
     Indication: PRODUCT USED FOR UNKNOWN INDICATION
     Dates: start: 20140403
  2. KLONOPIN (CLONAZEPAM) [Concomitant]
  3. IMITREX [Concomitant]
     Active Substance: SUMATRIPTAN\SUMATRIPTAN SUCCINATE
  4. ZANAFLEX [Concomitant]
     Active Substance: TIZANIDINE HYDROCHLORIDE
  5. CYMBALTA [Concomitant]
     Active Substance: DULOXETINE HYDROCHLORIDE
  6. DAYPRO (OXAPROZIN) [Concomitant]
  7. PRILOSEC (OMEPRAZOLE MAGNESIUM) [Concomitant]
  8. BENTYL (DICYCLOVERINE HYDROCHLORIDE) [Concomitant]
  9. LURASIDONE (LURASIDONE) [Concomitant]
  10. PROPRANOLOL (PROPRANOLOL HYDROCHLORIDE) [Concomitant]
  11. LYRICA [Concomitant]
     Active Substance: PREGABALIN
  12. NEURONTIN [Concomitant]
     Active Substance: GABAPENTIN
  13. COLACE [Concomitant]
     Active Substance: DOCUSATE SODIUM
  14. IBUPROFEN (IBUPROFEN) [Concomitant]
     Active Substance: IBUPROFEN
  15. LASIX [Concomitant]
     Active Substance: FUROSEMIDE
  16. ZOFRAN (ONDANSETRON HYDROCHLORIDE) [Concomitant]
  17. LIDOCAINE (LIDOCAINE HYDROCHLORIDE) [Concomitant]
  18. LEVOTHYROXINE (LEVOTHYROXINE SODIUM) [Concomitant]

REACTIONS (1)
  - Convulsion [None]
